FAERS Safety Report 9192724 (Version 1)
Quarter: 2013Q1

REPORT INFORMATION
  Report Type: Spontaneous
  Country: US (occurrence: None)
  Receive Date: 20130325
  Receipt Date: 20130325
  Transmission Date: 20140127
  Serious: Yes (Hospitalization)
  Sender: FDA-Public Use
  Company Number: None

PATIENT
  Sex: Female
  Weight: 101.15 kg

DRUGS (1)
  1. CISPLATIN [Suspect]
     Dosage: 100MG/M2 (205MG) IV, DAY 1 + DAY 22 OF CYCLE

REACTIONS (11)
  - Dyspnoea [None]
  - Body temperature increased [None]
  - Blood pressure decreased [None]
  - Nausea [None]
  - Vomiting [None]
  - Asthenia [None]
  - Fatigue [None]
  - Urinary tract infection [None]
  - Dehydration [None]
  - Renal failure acute [None]
  - Drug ineffective [None]
